FAERS Safety Report 9678151 (Version 1)
Quarter: 2013Q4

REPORT INFORMATION
  Report Type: Spontaneous
  Country: US (occurrence: None)
  Receive Date: 20131107
  Receipt Date: 20131107
  Transmission Date: 20140711
  Serious: Yes (Hospitalization)
  Sender: FDA-Public Use
  Company Number: None

PATIENT
  Age: 38 Year
  Sex: Male
  Weight: 80.7 kg

DRUGS (3)
  1. LISINOPRIL 20 MG [Suspect]
     Indication: HYPERTENSION
     Route: 048
     Dates: start: 20131101, end: 20131103
  2. CEPHALEXIN [Concomitant]
  3. CIPROFLOXACIN [Concomitant]

REACTIONS (7)
  - Penile swelling [None]
  - Scrotal swelling [None]
  - Abdominal pain upper [None]
  - Pharyngeal oedema [None]
  - Retching [None]
  - Erythema [None]
  - Angioedema [None]
